FAERS Safety Report 9838926 (Version 1)
Quarter: 2013Q4

REPORT INFORMATION
  Report Type: Spontaneous
  Country: US (occurrence: None)
  Receive Date: 20131206
  Receipt Date: 20131206
  Transmission Date: 20140711
  Serious: Yes (Hospitalization, Other)
  Sender: FDA-Public Use
  Company Number: 385903

PATIENT
  Age: 71 Year
  Sex: Female
  Weight: 76.66 kg

DRUGS (5)
  1. NOVOLOG (INSULIN ASPART) SOLUTION FOR INJECTION, 100U/ML [Suspect]
     Indication: TYPE 2 DIABETES MELLITUS
     Dosage: SLIDING SCALE, SUBCUTAN.-PUMP
     Dates: start: 2008
  2. LEVOXYL (LEVOTHYROXINE SODIUM ) [Concomitant]
  3. CELBREX (CELECOXIB) [Concomitant]
  4. LOSARTAN (LOSARTAN) [Concomitant]
  5. MULTIVITAMIN /00097801/ (ASCORBIC ACID, CALCIUM PANTOTHENATE, ERGOCALCIFEROL, NICOTINAMIDE, PYRIDOXINE HYDROCHLORIDE, RETINOL, RIBOFLAVIN, THIAMINE HYDROCHLORIDE) [Concomitant]

REACTIONS (2)
  - Product quality issue [None]
  - Blood glucose increased [None]
